FAERS Safety Report 6269886-2 (Version None)
Quarter: 2009Q3

REPORT INFORMATION
  Report Type: 
  Country: None (occurrence: None)
  Receive Date: 20090716
  Receipt Date: 20090710
  Transmission Date: 20100115
  Serious: Yes (Other)
  Sender: FDA-Public Use
  Company Number: ES-ALLERGAN-0909550US

PATIENT
  Age: 70 Year

DRUGS (14)
  1. ACULAR [Suspect]
     Indication: POSTOPERATIVE CARE
     Dosage: 1 GTT, QID
     Route: 047
  2. ACULAR [Suspect]
  3. ACULAR [Suspect]
     Indication: PAIN
  4. ACULAR [Suspect]
     Indication: ERYTHEMA
  5. ACULAR [Suspect]
     Indication: LACRIMATION INCREASED
  6. ACULAR [Suspect]
     Indication: BLEPHAROSPASM
  7. ACULAR [Suspect]
     Indication: CILIARY HYPERAEMIA
  8. ACULAR [Suspect]
     Indication: CORNEAL THINNING
  9. ACULAR [Suspect]
     Indication: CORNEAL EPITHELIUM DEFECT
  10. ACULAR [Suspect]
     Indication: CORNEAL INFILTRATES
  11. TOBRADEX [Concomitant]
     Indication: POSTOPERATIVE CARE
     Dosage: 1 GTT, QID
     Route: 047
  12. TOBRADEX [Concomitant]
  13. TIMOFTOL [Concomitant]
     Indication: POSTOPERATIVE CARE
     Dosage: 1 GTT, BID
     Route: 047
  14. TIMOFTOL [Concomitant]

REACTIONS (1)
  - ULCERATIVE KERATITIS [None]
